FAERS Safety Report 12012867 (Version 1)
Quarter: 2016Q1

REPORT INFORMATION
  Report Type: Spontaneous
  Country: GB (occurrence: GB)
  Receive Date: 20160205
  Receipt Date: 20160205
  Transmission Date: 20160526
  Serious: Yes (Hospitalization)
  Sender: FDA-Public Use
  Company Number: GB-ASTRAZENECA-2016SE10458

PATIENT
  Age: 51 Year
  Sex: Female

DRUGS (12)
  1. COCODAMOL [Concomitant]
     Active Substance: ACETAMINOPHEN\CODEINE PHOSPHATE
  2. DICLOFENAC [Concomitant]
     Active Substance: DICLOFENAC
  3. TRAMADOL. [Concomitant]
     Active Substance: TRAMADOL
  4. TERBUTALINE [Concomitant]
     Active Substance: TERBUTALINE
  5. PREGABALIN. [Concomitant]
     Active Substance: PREGABALIN
  6. APIXABAN [Concomitant]
     Active Substance: APIXABAN
  7. VITAMIN B12 [Concomitant]
     Active Substance: CYANOCOBALAMIN
  8. AMITRIPTYLINE [Concomitant]
     Active Substance: AMITRIPTYLINE
  9. LACTULOSE. [Concomitant]
     Active Substance: LACTULOSE
  10. SENNA [Concomitant]
     Active Substance: SENNA LEAF\SENNOSIDES\SENNOSIDES A AND B
  11. OMEPRAZOLE. [Suspect]
     Active Substance: OMEPRAZOLE
     Route: 048
     Dates: start: 2014, end: 20160112
  12. OXYNORM [Concomitant]
     Active Substance: OXYCODONE HYDROCHLORIDE

REACTIONS (4)
  - Pyrexia [Unknown]
  - Dyspnoea [Unknown]
  - Acute kidney injury [Unknown]
  - Tubulointerstitial nephritis [Not Recovered/Not Resolved]

NARRATIVE: CASE EVENT DATE: 20151226
